FAERS Safety Report 16919458 (Version 1)
Quarter: 2019Q4

REPORT INFORMATION
  Report Type: Spontaneous
  Country: US (occurrence: US)
  Receive Date: 20191014
  Receipt Date: 20191014
  Transmission Date: 20200122
  Serious: Yes (Disabling)
  Sender: FDA-Public Use
  Company Number: None

PATIENT
  Age: 66 Year
  Weight: 99 kg

DRUGS (8)
  1. CHOLESTOFF [Concomitant]
  2. LOSARTAN-HCTZ [Concomitant]
     Active Substance: HYDROCHLOROTHIAZIDE\LOSARTAN
  3. CENTRUM SILVER MEN^S VITAMINS [Concomitant]
  4. DEXILANT [Concomitant]
     Active Substance: DEXLANSOPRAZOLE
  5. ATORVASTATIN [Concomitant]
     Active Substance: ATORVASTATIN
  6. XIIDRA [Suspect]
     Active Substance: LIFITEGRAST
     Indication: DRY EYE
     Dosage: ?          QUANTITY:30 SINGLE USE CONTAIN;?
     Route: 047
     Dates: start: 20190813, end: 20190913
  7. FISH OIL GUMMIES [Concomitant]
  8. VITAMIN D [Concomitant]
     Active Substance: VITAMIN D NOS

REACTIONS (4)
  - Therapy change [None]
  - Eye irritation [None]
  - Insomnia [None]
  - Eye pain [None]

NARRATIVE: CASE EVENT DATE: 20190828
